FAERS Safety Report 24047532 (Version 1)
Quarter: 2024Q3

REPORT INFORMATION
  Report Type: Spontaneous
  Country: BR (occurrence: BR)
  Receive Date: 20240703
  Receipt Date: 20240703
  Transmission Date: 20241017
  Serious: Yes (Other)
  Sender: TAKEDA
  Company Number: BR-TAKEDA-2024TUS066177

PATIENT
  Age: 18 Year
  Sex: Female

DRUGS (1)
  1. ENTYVIO [Suspect]
     Active Substance: VEDOLIZUMAB
     Indication: Crohn^s disease
     Dosage: UNK UNK, Q4WEEKS
     Route: 065

REACTIONS (9)
  - Crohn^s disease [Unknown]
  - Abdominal pain upper [Unknown]
  - Asthenia [Unknown]
  - Hepatic steatosis [Unknown]
  - Weight increased [Unknown]
  - Rib fracture [Unknown]
  - Amenorrhoea [Unknown]
  - Road traffic accident [Unknown]
  - Off label use [Unknown]
